FAERS Safety Report 11738733 (Version 5)
Quarter: 2021Q2

REPORT INFORMATION
  Report Type: Spontaneous
  Country: FR (occurrence: FR)
  Receive Date: 20151113
  Receipt Date: 20210422
  Transmission Date: 20210716
  Serious: Yes (Disabling, Congenital Anomaly)
  Sender: FDA-Public Use
  Company Number: FR-ABBVIE-15P-056-1500304-00

PATIENT
  Sex: Male
  Weight: 3.33 kg

DRUGS (1)
  1. DEPAKINE CHRONO [Suspect]
     Active Substance: VALPROATE SODIUM
     Indication: MATERNAL EXPOSURE TIMING UNSPECIFIED
     Route: 064

REACTIONS (27)
  - Upper respiratory tract infection [Unknown]
  - Speech disorder [Recovering/Resolving]
  - Mobility decreased [Not Recovered/Not Resolved]
  - Asthenia [Not Recovered/Not Resolved]
  - Autism spectrum disorder [Not Recovered/Not Resolved]
  - Incontinence [Not Recovered/Not Resolved]
  - Disturbance in attention [Recovering/Resolving]
  - Laryngitis [Unknown]
  - Bronchiolitis [Unknown]
  - Haemangioma of skin [Not Recovered/Not Resolved]
  - Psychomotor skills impaired [Not Recovered/Not Resolved]
  - Affective disorder [Not Recovered/Not Resolved]
  - Congenital hand malformation [Not Recovered/Not Resolved]
  - Foetal exposure during pregnancy [Unknown]
  - Ear infection [Unknown]
  - Intellectual disability [Not Recovered/Not Resolved]
  - Congenital genitourinary abnormality [Not Recovered/Not Resolved]
  - Congenital torticollis [Unknown]
  - Anxiety [Not Recovered/Not Resolved]
  - Multiple congenital abnormalities [Not Recovered/Not Resolved]
  - Dysmorphism [Not Recovered/Not Resolved]
  - Enuresis [Not Recovered/Not Resolved]
  - Nasopharyngitis [Unknown]
  - Congenital musculoskeletal anomaly [Not Recovered/Not Resolved]
  - Femoral anteversion [Unknown]
  - Developmental delay [Recovering/Resolving]
  - Prominent epicanthal folds [Not Recovered/Not Resolved]

NARRATIVE: CASE EVENT DATE: 2012
